FAERS Safety Report 7438456-2 (Version None)
Quarter: 2011Q2

REPORT INFORMATION
  Report Type: 
  Country: None (occurrence: None)
  Receive Date: 20110426
  Receipt Date: 20110418
  Transmission Date: 20111010
  Serious: Yes (Death)
  Sender: FDA-Public Use
  Company Number: US-CELGENEUS-163-21880-11040123

PATIENT
  Sex: Male

DRUGS (4)
  1. PANTOPRAZOLE [Concomitant]
     Dosage: 40 MILLIGRAM
     Route: 048
  2. VALACYCLOVIR [Concomitant]
     Indication: HERPES ZOSTER
     Dosage: 1 GRAM
     Route: 048
  3. OXYBUTYNIN [Concomitant]
     Indication: DYSURIA
     Dosage: 5 MILLIGRAM
     Route: 048
  4. REVLIMID [Suspect]
     Dosage: 5 MILLIGRAM
     Route: 048
     Dates: start: 20110215, end: 20110222

REACTIONS (2)
  - THROMBOCYTOPENIA [None]
  - HAEMORRHAGE INTRACRANIAL [None]
